FAERS Safety Report 25526012 (Version 2)
Quarter: 2025Q4

REPORT INFORMATION
  Report Type: Spontaneous
  Country: KR (occurrence: KR)
  Receive Date: 20250707
  Receipt Date: 20251121
  Transmission Date: 20260118
  Serious: Yes (Life-Threatening, Other)
  Sender: PFIZER
  Company Number: KR-PFIZER INC-202500132770

PATIENT
  Age: 65 Year
  Sex: Male

DRUGS (2)
  1. IDARUBICIN [Suspect]
     Active Substance: IDARUBICIN
     Indication: Chemotherapy
     Dosage: 21 MG, 1X/DAY
     Dates: start: 20240411, end: 20240412
  2. CYTARABINE [Suspect]
     Active Substance: CYTARABINE
     Indication: Chemotherapy
     Dosage: 176 MG, 1X/DAY
     Dates: start: 20240411, end: 20240415

REACTIONS (1)
  - Neutrophil count decreased [Recovered/Resolved]

NARRATIVE: CASE EVENT DATE: 20240416
